FAERS Safety Report 9644575 (Version 1)
Quarter: 2013Q4

REPORT INFORMATION
  Report Type: Spontaneous
  Country: US (occurrence: None)
  Receive Date: 20131025
  Receipt Date: 20131025
  Transmission Date: 20140711
  Serious: Yes (Death)
  Sender: FDA-Public Use
  Company Number: 2013SP007389

PATIENT
  Age: 59 Year
  Sex: Male

DRUGS (4)
  1. HALOPERIDOL DECANOATE [Suspect]
     Indication: PSYCHOTIC DISORDER
     Route: 030
  2. DIAZEPAM [Concomitant]
     Route: 030
  3. CEFTRIAXONE [Concomitant]
     Route: 042
  4. MODURETIC [Concomitant]

REACTIONS (1)
  - Pulmonary embolism [Fatal]
